FAERS Safety Report 10479963 (Version 1)
Quarter: 2014Q3

REPORT INFORMATION
  Report Type: Spontaneous
  Country: US (occurrence: None)
  Receive Date: 20140926
  Receipt Date: 20140926
  Transmission Date: 20150326
  Serious: Yes (Other)
  Sender: FDA-Public Use
  Company Number: None

PATIENT
  Age: 71 Year
  Sex: Female
  Weight: 76.66 kg

DRUGS (1)
  1. LOSARTAN/HCT [Suspect]
     Active Substance: HYDROCHLOROTHIAZIDE\LOSARTAN POTASSIUM
     Indication: BLOOD PRESSURE MANAGEMENT
     Dosage: 1 TAB PER DAY, ONCE DAILY, TAKEN BY MOUTH
     Route: 048
     Dates: start: 20131214, end: 20140914

REACTIONS (3)
  - Myalgia [None]
  - Gait disturbance [None]
  - Sleep disorder [None]
